FAERS Safety Report 10134182 (Version 1)
Quarter: 2014Q2

REPORT INFORMATION
  Report Type: Spontaneous
  Country: US (occurrence: US)
  Receive Date: 20140428
  Receipt Date: 20140428
  Transmission Date: 20141212
  Serious: Yes (Death, Other)
  Sender: FDA-Public Use
  Company Number: PHHY2014US048136

PATIENT
  Age: 75 Year
  Sex: Male

DRUGS (1)
  1. VORICONAZOLE [Suspect]

REACTIONS (7)
  - Malignant neoplasm progression [Fatal]
  - Squamous cell carcinoma of skin [Fatal]
  - Skin hypertrophy [Fatal]
  - Skin lesion [Fatal]
  - Lymphadenopathy [Fatal]
  - Necrosis [Fatal]
  - Obstructive airways disorder [Unknown]
